FAERS Safety Report 4802525-3 (Version None)
Quarter: 2005Q4

REPORT INFORMATION
  Report Type: 
  Country: None (occurrence: None)
  Receive Date: 20051013
  Receipt Date: 20050930
  Transmission Date: 20060501
  Serious: Yes (Other)
  Sender: FDA-Public Use
  Company Number: 2005137131

PATIENT
  Sex: 0

DRUGS (2)
  1. SILDENAFIL CITRATE [Suspect]
     Indication: ILL-DEFINED DISORDER
     Dosage: 75 MG (25 MG, 1 IN 8 HR)
     Dates: start: 20050923
  2. AMIODARONE HCL [Suspect]
     Indication: ILL-DEFINED DISORDER
     Dates: start: 20050901

REACTIONS (5)
  - HYPOTENSION [None]
  - JAUNDICE [None]
  - LIVER FUNCTION TEST ABNORMAL [None]
  - MITRAL VALVE INCOMPETENCE [None]
  - RENAL FAILURE [None]
